FAERS Safety Report 8248228-7 (Version None)
Quarter: 2012Q1

REPORT INFORMATION
  Report Type: 
  Country: None (occurrence: None)
  Receive Date: 20120330
  Receipt Date: 20120328
  Transmission Date: 20120608
  Serious: No
  Sender: FDA-Public Use
  Company Number: KR-PFIZER INC-2012075235

PATIENT
  Age: 24 Year
  Sex: Male

DRUGS (1)
  1. XANAX [Suspect]
     Dosage: 2 TO 3 TABLETS PER A DAY

REACTIONS (1)
  - PAIN [None]
